FAERS Safety Report 4336109-0 (Version None)
Quarter: 2004Q2

REPORT INFORMATION
  Report Type: 
  Country: None (occurrence: None)
  Receive Date: 20040409
  Receipt Date: 20030318
  Transmission Date: 20050107
  Serious: Yes (Other)
  Sender: FDA-Public Use
  Company Number: US-MERCK-0303USA01754

PATIENT
  Age: 37 Year
  Sex: Female

DRUGS (5)
  1. [THERAPY UNSPECIFIED] [Concomitant]
     Route: 065
  2. CORTICOSTEROIDS (UNSPECIFIED) [Concomitant]
     Route: 065
  3. IMMUNOTHERAPY (UNSPECIFIED) [Concomitant]
     Route: 065
  4. SINGULAIR [Suspect]
     Route: 048
  5. THEOPHYLLINE [Concomitant]
     Indication: ASTHMA
     Route: 065

REACTIONS (1)
  - HEPATITIS ACUTE [None]
